FAERS Safety Report 4345994-8 (Version None)
Quarter: 2004Q2

REPORT INFORMATION
  Report Type: 
  Country: None (occurrence: None)
  Receive Date: 20040426
  Receipt Date: 20040416
  Transmission Date: 20050107
  Serious: Yes (Other)
  Sender: FDA-Public Use
  Company Number: PHBS2004CA05228

PATIENT
  Sex: Male

DRUGS (2)
  1. ELIDEL [Suspect]
     Dosage: UNK, BID
     Dates: start: 20040415, end: 20040416
  2. GOAT MILK CREAM [Concomitant]

REACTIONS (1)
  - RASH GENERALISED [None]
